FAERS Safety Report 5368936-5 (Version None)
Quarter: 2007Q2

REPORT INFORMATION
  Report Type: 
  Country: None (occurrence: None)
  Receive Date: 20070625
  Receipt Date: 20070119
  Transmission Date: 20071010
  Serious: No
  Sender: FDA-Public Use
  Company Number: US-ASTRAZENECA-2006UW26847

PATIENT
  Age: 79 Year
  Sex: Female
  Weight: 55.9 kg

DRUGS (10)
  1. CRESTOR [Suspect]
     Route: 048
  2. TOPROL-XL [Concomitant]
     Route: 048
  3. VASOTEC [Concomitant]
  4. GLUCOTROL [Concomitant]
  5. ACTOS [Concomitant]
     Route: 048
  6. ZETIA [Concomitant]
  7. LOPID [Concomitant]
  8. ASPIRIN [Concomitant]
     Dosage: M-W-F
  9. ALLOPURINOL [Concomitant]
     Route: 048
  10. NASONEX [Concomitant]

REACTIONS (1)
  - RESPIRATORY DISORDER [None]
